FAERS Safety Report 10866452 (Version 1)
Quarter: 2015Q1

REPORT INFORMATION
  Report Type: Spontaneous
  Country: US (occurrence: None)
  Receive Date: 20150220
  Receipt Date: 20150220
  Transmission Date: 20150721
  Serious: Yes (Life-Threatening, Hospitalization, Congenital Anomaly, Other)
  Sender: FDA-Public Use
  Company Number: None

PATIENT
  Age: 6 Year
  Sex: Female
  Weight: 24.95 kg

DRUGS (1)
  1. ZOFRAN [Suspect]
     Active Substance: ONDANSETRON HYDROCHLORIDE
     Indication: VOMITING IN PREGNANCY
     Dosage: 1 PILL EVERY 4 HOURS
     Route: 048
     Dates: start: 200706, end: 200801

REACTIONS (2)
  - Gastrointestinal disorder [None]
  - Foetal exposure during pregnancy [None]

NARRATIVE: CASE EVENT DATE: 20141001
